FAERS Safety Report 15903498 (Version 1)
Quarter: 2019Q1

REPORT INFORMATION
  Report Type: Spontaneous
  Country: US (occurrence: US)
  Receive Date: 20190203
  Receipt Date: 20190203
  Transmission Date: 20190417
  Serious: Yes (Hospitalization)
  Sender: FDA-Public Use
  Company Number: US-TEVA-2019-US-1005219

PATIENT
  Age: 78 Year
  Sex: Female

DRUGS (1)
  1. MINOXIDIL SOLUTION [Suspect]
     Active Substance: MINOXIDIL
     Route: 048

REACTIONS (1)
  - Accidental exposure to product [Unknown]
